FAERS Safety Report 20832780 (Version 1)
Quarter: 2022Q2

REPORT INFORMATION
  Report Type: Report from Study
  Country: US (occurrence: US)
  Receive Date: 20220516
  Receipt Date: 20220516
  Transmission Date: 20220720
  Serious: No
  Sender: FDA-Public Use
  Company Number: US-TG THERAPEUTICS INC.-TGT002476

PATIENT
  Sex: Male
  Weight: 74.83 kg

DRUGS (3)
  1. UKONIQ [Suspect]
     Active Substance: UMBRALISIB TOSYLATE
     Indication: Follicular lymphoma
     Dosage: 800 MILLIGRAM, DAILY
     Route: 048
  2. INSULIN NOS [Concomitant]
     Active Substance: INSULIN NOS
     Indication: Diabetes mellitus
  3. LIPITOR [Concomitant]
     Active Substance: ATORVASTATIN CALCIUM
     Indication: Blood cholesterol increased
     Dosage: 800 MILLIGRAM

REACTIONS (4)
  - Blood glucose decreased [Unknown]
  - Weight decreased [Unknown]
  - Somnolence [Unknown]
  - Depression [Unknown]
